FAERS Safety Report 8879372 (Version 3)
Quarter: 2013Q2

REPORT INFORMATION
  Report Type: Spontaneous
  Country: US (occurrence: US)
  Receive Date: 20121101
  Receipt Date: 20130417
  Transmission Date: 20140414
  Serious: No
  Sender: FDA-Public Use
  Company Number: US-BIOGENIDEC-2012BI047762

PATIENT
  Age: 56 Year
  Sex: Female

DRUGS (2)
  1. TYSABRI [Suspect]
     Indication: MULTIPLE SCLEROSIS
     Route: 042
     Dates: start: 20121012
  2. PROVIGIL [Concomitant]
     Indication: FATIGUE

REACTIONS (16)
  - Nervousness [Not Recovered/Not Resolved]
  - Feeling jittery [Not Recovered/Not Resolved]
  - Visual impairment [Not Recovered/Not Resolved]
  - Gait disturbance [Not Recovered/Not Resolved]
  - Balance disorder [Not Recovered/Not Resolved]
  - Optic neuritis [Not Recovered/Not Resolved]
  - Pain in extremity [Not Recovered/Not Resolved]
  - Depressed mood [Not Recovered/Not Resolved]
  - Hypersomnia [Not Recovered/Not Resolved]
  - Somnolence [Not Recovered/Not Resolved]
  - Asthenia [Not Recovered/Not Resolved]
  - Headache [Not Recovered/Not Resolved]
  - Dizziness [Not Recovered/Not Resolved]
  - Fatigue [Not Recovered/Not Resolved]
  - Pruritus [Not Recovered/Not Resolved]
  - Bronchitis [Not Recovered/Not Resolved]
